FAERS Safety Report 12172565 (Version 1)
Quarter: 2016Q1

REPORT INFORMATION
  Report Type: Spontaneous
  Country: DE (occurrence: DE)
  Receive Date: 20160311
  Receipt Date: 20160311
  Transmission Date: 20160526
  Serious: Yes (Congenital Anomaly)
  Sender: FDA-Public Use
  Company Number: DE-TEVA-640410GER

PATIENT
  Age: 1 Day
  Sex: Male
  Weight: 2.78 kg

DRUGS (7)
  1. FOLSAEURE [Concomitant]
     Active Substance: FOLIC ACID
     Indication: PROPHYLAXIS OF NEURAL TUBE DEFECT
     Route: 064
  2. ROPINIROLE. [Suspect]
     Active Substance: ROPINIROLE
     Dosage: 2 MILLIGRAM DAILY; IN EARLY PREGNANCY
  3. ROPINIROLE. [Suspect]
     Active Substance: ROPINIROLE
     Indication: PARKINSON^S DISEASE
     Dosage: 10 MILLIGRAM DAILY;
     Route: 064
     Dates: start: 20141016, end: 20141126
  4. ESTRIFAM [Concomitant]
     Active Substance: ESTRADIOL
     Indication: ASSISTED FERTILISATION
     Dosage: 6 MILLIGRAM DAILY;
     Route: 064
     Dates: start: 20141016, end: 20141202
  5. PROGESTAN [Concomitant]
     Active Substance: PROGESTERONE
     Indication: ASSISTED FERTILISATION
     Dosage: 600 MILLIGRAM DAILY;
     Route: 064
  6. LEVODOPA/BENSERAZID [Suspect]
     Active Substance: BENSERAZIDE\LEVODOPA
     Dosage: 37.5MG BENSERAZID AND 150 MG LEVODOPA DAILY
     Route: 064
  7. LEVODOPA/BENSERAZID [Suspect]
     Active Substance: BENSERAZIDE\LEVODOPA
     Indication: PARKINSON^S DISEASE
     Dosage: 300 MG LEVODOPA AND 75 MG BENSERAZID DAILY
     Route: 064

REACTIONS (2)
  - Haemangioma [Unknown]
  - Foetal exposure during pregnancy [Unknown]

NARRATIVE: CASE EVENT DATE: 20150716
